FAERS Safety Report 8185681-1 (Version None)
Quarter: 2012Q1

REPORT INFORMATION
  Report Type: 
  Country: None (occurrence: None)
  Receive Date: 20120305
  Receipt Date: 20120224
  Transmission Date: 20120608
  Serious: Yes (Other)
  Sender: FDA-Public Use
  Company Number: US-FRI-1000028707

PATIENT
  Sex: Male

DRUGS (1)
  1. VIIBRYD [Suspect]

REACTIONS (1)
  - SUICIDAL IDEATION [None]
